FAERS Safety Report 6131115-8 (Version None)
Quarter: 2009Q1

REPORT INFORMATION
  Report Type: 
  Country: None (occurrence: None)
  Receive Date: 20090325
  Receipt Date: 20090325
  Transmission Date: 20090719
  Serious: Yes (Death, Hospitalization, Disabling)
  Sender: FDA-Public Use
  Company Number: PHHO2002RU06199

PATIENT
  Sex: Female
  Weight: 67 kg

DRUGS (4)
  1. CGS 20267 T30748+ [Suspect]
     Indication: BREAST CANCER
     Dosage: 2.5 MG, QD
     Route: 048
     Dates: start: 19981119, end: 20020731
  2. CARDIKET [Concomitant]
     Indication: SHOCK
     Dates: start: 20000101
  3. VEROSPIRON [Concomitant]
     Indication: SHOCK
     Dates: start: 20000101
  4. DIGOXIN [Concomitant]
     Indication: SHOCK
     Dates: start: 20000101

REACTIONS (11)
  - ARTERIOSCLEROSIS CORONARY ARTERY [None]
  - ASTHENIA [None]
  - CARDIAC FAILURE [None]
  - CEREBRAL ARTERIOSCLEROSIS [None]
  - DYSPNOEA [None]
  - GENERALISED OEDEMA [None]
  - ISCHAEMIC STROKE [None]
  - MYOCARDIAL ISCHAEMIA [None]
  - PNEUMONIA [None]
  - PULMONARY CONGESTION [None]
  - RALES [None]
